FAERS Safety Report 7205669-4 (Version None)
Quarter: 2010Q4

REPORT INFORMATION
  Report Type: 
  Country: None (occurrence: None)
  Receive Date: 20101231
  Receipt Date: 20101220
  Transmission Date: 20110411
  Serious: Yes (Other)
  Sender: FDA-Public Use
  Company Number: PHHY2010NL77746

PATIENT
  Sex: Female

DRUGS (3)
  1. ZOMETA [Suspect]
     Indication: LUNG CANCER METASTATIC
     Dosage: 4MG/5ML PER 21 DAYS
     Route: 042
     Dates: start: 20100219
  2. TRAMADOL [Concomitant]
     Dosage: 2DD110 MG
  3. ACETAMINOPHEN [Concomitant]
     Dosage: 500MG 4X2

REACTIONS (6)
  - FALL [None]
  - MALIGNANT NEOPLASM PROGRESSION [None]
  - METASTASES TO BONE [None]
  - MUSCULAR WEAKNESS [None]
  - SURGERY [None]
  - UPPER LIMB FRACTURE [None]
